FAERS Safety Report 11557436 (Version 3)
Quarter: 2018Q4

REPORT INFORMATION
  Report Type: Spontaneous
  Country: GR (occurrence: GR)
  Receive Date: 20150925
  Receipt Date: 20181119
  Transmission Date: 20190204
  Serious: Yes (Other)
  Sender: FDA-Public Use
  Company Number: GR-AMGEN-GRCSP2015098369

PATIENT
  Age: 59 Year
  Sex: Female
  Weight: 62 kg

DRUGS (4)
  1. LOSEC [Concomitant]
     Active Substance: OMEPRAZOLE
     Indication: GASTROOESOPHAGEAL REFLUX DISEASE
     Dosage: 20 MG, QD
     Route: 048
  2. LAPRAZOL [Concomitant]
     Active Substance: LANSOPRAZOLE
     Indication: COLITIS
     Dosage: 30 MG, QD
  3. PROLIA [Suspect]
     Active Substance: DENOSUMAB
     Indication: OSTEOPOROSIS
     Dosage: 1 DF, Q6MO
     Route: 058
     Dates: start: 201109, end: 20150327
  4. EUTHYROX [Concomitant]
     Active Substance: LEVOTHYROXINE SODIUM
     Indication: AUTOIMMUNE THYROIDITIS
     Dosage: UNK (100 MCG 4 DAYS/WEEK AND 150 MCG 3 DAYS/WEEK) QD150 MCG THREE DAYS PER WEEK ALTERNATING

REACTIONS (18)
  - Dry skin [Not Recovered/Not Resolved]
  - Hyponatraemia [Not Recovered/Not Resolved]
  - Incontinence [Not Recovered/Not Resolved]
  - Visual field defect [Not Recovered/Not Resolved]
  - Lordosis [Recovered/Resolved]
  - Alopecia [Not Recovered/Not Resolved]
  - Dyskinesia [Not Recovered/Not Resolved]
  - Visual impairment [Not Recovered/Not Resolved]
  - Anaemia [Not Recovered/Not Resolved]
  - Back pain [Recovered/Resolved]
  - Skin exfoliation [Recovering/Resolving]
  - Upper respiratory tract infection [Unknown]
  - Constipation [Not Recovered/Not Resolved]
  - Muscle fatigue [Recovered/Resolved]
  - Kyphosis [Recovered/Resolved]
  - Dehydration [Recovered/Resolved]
  - Hypoaesthesia [Recovering/Resolving]
  - Arthralgia [Recovering/Resolving]

NARRATIVE: CASE EVENT DATE: 2011
